FAERS Safety Report 9203590 (Version 2)
Quarter: 2013Q2

REPORT INFORMATION
  Report Type: Spontaneous
  Country: US (occurrence: US)
  Receive Date: 20130402
  Receipt Date: 20130402
  Transmission Date: 20140414
  Serious: No
  Sender: FDA-Public Use
  Company Number: US-BAYER-2013-037473

PATIENT
  Sex: Female

DRUGS (1)
  1. MENOSTAR [Suspect]
     Indication: HOT FLUSH
     Dosage: 14 MCG/24HR, OW
     Route: 062

REACTIONS (2)
  - Hot flush [None]
  - Product adhesion issue [None]
